FAERS Safety Report 6348928-X (Version None)
Quarter: 2009Q3

REPORT INFORMATION
  Report Type: 
  Country: None (occurrence: None)
  Receive Date: 20090911
  Receipt Date: 20090907
  Transmission Date: 20100115
  Serious: Yes (Death, Hospitalization)
  Sender: FDA-Public Use
  Company Number: IT-CELGENEUS-083-C5013-09082285

PATIENT
  Sex: Female
  Weight: 51 kg

DRUGS (6)
  1. THALIDOMIDE [Suspect]
     Indication: MULTIPLE MYELOMA
     Route: 048
     Dates: start: 20090727, end: 20090830
  2. MELPHALAN HYDROCHLORIDE [Suspect]
     Indication: MULTIPLE MYELOMA
     Route: 065
     Dates: start: 20090727, end: 20090730
  3. PREDNISONE TAB [Suspect]
     Indication: MULTIPLE MYELOMA
     Route: 065
     Dates: start: 20090727, end: 20090730
  4. LANSOPRAZOLE [Concomitant]
     Indication: PROPHYLAXIS
     Route: 048
     Dates: start: 20090727
  5. ASPIRIN [Concomitant]
     Indication: THROMBOSIS PROPHYLAXIS
     Route: 048
     Dates: start: 20090727, end: 20090830
  6. BETA ERYTHROPOIETIN [Concomitant]
     Route: 058
     Dates: start: 20090803

REACTIONS (4)
  - BONE PAIN [None]
  - GENERAL PHYSICAL HEALTH DETERIORATION [None]
  - PNEUMONITIS [None]
  - STERNAL FRACTURE [None]
